FAERS Safety Report 7907509-4 (Version None)
Quarter: 2011Q4

REPORT INFORMATION
  Report Type: 
  Country: None (occurrence: None)
  Receive Date: 20111110
  Receipt Date: 20111101
  Transmission Date: 20120403
  Serious: Yes (Life-Threatening)
  Sender: FDA-Public Use
  Company Number: US-BAYER-2011-029733

PATIENT
  Age: 26 Year
  Sex: Female

DRUGS (2)
  1. IBUPROFEN [Concomitant]
     Dosage: UNK UNK, PRN
  2. YAZ [Suspect]
     Indication: CONTRACEPTION
     Dosage: UNK
     Dates: start: 20050101, end: 20091001

REACTIONS (6)
  - INJURY [None]
  - EMOTIONAL DISTRESS [None]
  - ANXIETY [None]
  - PAIN [None]
  - HEPATIC NEOPLASM [None]
  - ANHEDONIA [None]
